FAERS Safety Report 23597755 (Version 1)
Quarter: 2024Q1

REPORT INFORMATION
  Report Type: Spontaneous
  Country: US (occurrence: US)
  Receive Date: 20240305
  Receipt Date: 20240305
  Transmission Date: 20240410
  Serious: No
  Sender: FDA-Public Use
  Company Number: US-SANOFI-01962776

PATIENT
  Age: 15 Year
  Sex: Female

DRUGS (2)
  1. DUPIXENT [Suspect]
     Active Substance: DUPILUMAB
     Indication: Eczema
     Dosage: 600 MG, 1X
     Dates: start: 20230705, end: 20230705
  2. DUPIXENT [Suspect]
     Active Substance: DUPILUMAB
     Dosage: 300MG QOW
     Dates: start: 202307, end: 202308

REACTIONS (6)
  - Injection site pain [Unknown]
  - Scratch [Unknown]
  - Infection [Unknown]
  - Sleep disorder [Unknown]
  - Illness [Unknown]
  - Eczema [Unknown]

NARRATIVE: CASE EVENT DATE: 20230101
